FAERS Safety Report 7868459-5 (Version None)
Quarter: 2011Q4

REPORT INFORMATION
  Report Type: 
  Country: None (occurrence: None)
  Receive Date: 20111028
  Receipt Date: 20101211
  Transmission Date: 20120403
  Serious: Yes (Other)
  Sender: FDA-Public Use
  Company Number: US-AMGEN-USASP2010004359

PATIENT
  Age: 49 Year
  Sex: Male

DRUGS (3)
  1. ADALIMUMAB [Concomitant]
     Dosage: UNK
     Dates: start: 20080101, end: 20080101
  2. ENBREL [Suspect]
     Dosage: 50 MG, QWK
     Dates: start: 20040520, end: 20081116
  3. ENBREL [Suspect]
     Indication: PSORIASIS
     Dosage: 50 MG, QWK
     Dates: start: 20090604, end: 20101112

REACTIONS (1)
  - LYMPHOMA [None]
